FAERS Safety Report 6396857-8 (Version None)
Quarter: 2009Q4

REPORT INFORMATION
  Report Type: 
  Country: None (occurrence: None)
  Receive Date: 20091012
  Receipt Date: 20090604
  Transmission Date: 20100525
  Serious: No
  Sender: FDA-Public Use
  Company Number: US-ASTRAZENECA-2009UW14250

PATIENT
  Age: 76 Year
  Sex: Female

DRUGS (5)
  1. SYMBICORT [Suspect]
     Dosage: 160/4.5
     Route: 055
  2. SOTALOL [Concomitant]
  3. GLIPIZIDE [Concomitant]
  4. SIMVASTATIN [Concomitant]
  5. DIAZEPAM [Concomitant]

REACTIONS (1)
  - ALOPECIA [None]
